FAERS Safety Report 9792455 (Version 4)
Quarter: 2014Q1

REPORT INFORMATION
  Report Type: Spontaneous
  Country: US (occurrence: US)
  Receive Date: 20140102
  Receipt Date: 20140303
  Transmission Date: 20141002
  Serious: No
  Sender: FDA-Public Use
  Company Number: US-BIOGENIDEC-2013BI123355

PATIENT
  Age: 18 Year
  Sex: Female
  Weight: 72 kg

DRUGS (7)
  1. TECFIDERA [Suspect]
     Indication: MULTIPLE SCLEROSIS
     Route: 048
  2. TECFIDERA [Suspect]
     Indication: MULTIPLE SCLEROSIS
     Route: 048
  3. TECFIDERA [Suspect]
     Indication: MULTIPLE SCLEROSIS
     Dates: start: 20131206
  4. TECFIDERA [Suspect]
     Indication: MULTIPLE SCLEROSIS
     Route: 048
     Dates: start: 20140109
  5. TECFIDERA [Suspect]
     Indication: MULTIPLE SCLEROSIS
     Route: 048
  6. TECFIDERA [Suspect]
     Indication: MULTIPLE SCLEROSIS
     Route: 048
     Dates: end: 20140127
  7. VICODIN HP [Concomitant]

REACTIONS (11)
  - Muscle spasms [Unknown]
  - Nausea [Unknown]
  - Gastrointestinal disorder [Unknown]
  - Vomiting [Unknown]
  - Somnolence [Unknown]
  - Dry mouth [Unknown]
  - Off label use [Unknown]
  - Prescribed underdose [Unknown]
  - Central nervous system lesion [Unknown]
  - Diarrhoea [Unknown]
  - Abdominal discomfort [Unknown]
